FAERS Safety Report 13208021 (Version 2)
Quarter: 2017Q1

REPORT INFORMATION
  Report Type: Spontaneous
  Country: GB (occurrence: GB)
  Receive Date: 20170208
  Receipt Date: 20170216
  Transmission Date: 20170428
  Serious: Yes (Other)
  Sender: FDA-Public Use
  Company Number: GB-SA-2017SA018048

PATIENT
  Age: 34 Year
  Sex: Female

DRUGS (9)
  1. DULOXETINE. [Concomitant]
     Active Substance: DULOXETINE
     Indication: PAIN
     Route: 048
     Dates: start: 20161129
  2. LEMTRADA [Suspect]
     Active Substance: ALEMTUZUMAB
     Dosage: FREQUENCY OF OVER 5/7
     Route: 041
     Dates: start: 20131014, end: 20131018
  3. MONTELUKAST [Concomitant]
     Active Substance: MONTELUKAST SODIUM
     Indication: ASTHMA
     Route: 048
     Dates: start: 20150909
  4. CAMPATH [Suspect]
     Active Substance: ALEMTUZUMAB
     Route: 065
  5. CIMETIDINE [Concomitant]
     Active Substance: CIMETIDINE
     Indication: DYSPEPSIA
     Route: 048
     Dates: start: 20161014
  6. FOSTAIR [Concomitant]
     Active Substance: BECLOMETHASONE\FORMOTEROL
     Indication: ASTHMA
     Route: 055
     Dates: start: 20150909
  7. AMANTADINE [Concomitant]
     Active Substance: AMANTADINE
     Indication: FATIGUE
     Route: 048
     Dates: start: 20140922
  8. LEMTRADA [Suspect]
     Active Substance: ALEMTUZUMAB
     Dosage: FREQUENCY OF OVER 3/7
     Route: 041
     Dates: start: 20141013, end: 20141015
  9. SALBUTAMOL [Concomitant]
     Active Substance: ALBUTEROL
     Indication: ASTHMA
     Route: 055
     Dates: start: 20120228

REACTIONS (10)
  - White blood cell count decreased [Unknown]
  - Viral infection [Unknown]
  - Neutrophil count decreased [Unknown]
  - Thrombocytopenia [Recovered/Resolved]
  - Contusion [Unknown]
  - Skin discolouration [Unknown]
  - Menorrhagia [Recovered/Resolved]
  - Immune thrombocytopenic purpura [Recovered/Resolved]
  - Haematocrit decreased [Recovered/Resolved]
  - Lymphocyte count decreased [Unknown]
